FAERS Safety Report 7474984-1 (Version None)
Quarter: 2011Q2

REPORT INFORMATION
  Report Type: 
  Country: None (occurrence: None)
  Receive Date: 20110512
  Receipt Date: 20110120
  Transmission Date: 20111010
  Serious: Yes (Other)
  Sender: FDA-Public Use
  Company Number: US-BAYER-201035096NA

PATIENT
  Age: 19 Year
  Sex: Female
  Weight: 90.703 kg

DRUGS (4)
  1. YASMIN [Suspect]
     Indication: ACNE
     Dosage: UNK
     Dates: start: 20070501, end: 20080801
  2. NORDETTE-21 [Concomitant]
     Dosage: UNK
     Dates: start: 20080926, end: 20090209
  3. YAZ [Suspect]
     Dosage: UNK
  4. DEPO-PROVERA [Concomitant]
     Dosage: UNK
     Dates: start: 20090625

REACTIONS (6)
  - ABDOMINAL PAIN UPPER [None]
  - DYSPEPSIA [None]
  - ABDOMINAL PAIN [None]
  - PROCEDURAL PAIN [None]
  - CHOLELITHIASIS [None]
  - GALLBLADDER DISORDER [None]
